FAERS Safety Report 14667668 (Version 2)
Quarter: 2018Q1

REPORT INFORMATION
  Report Type: Spontaneous
  Country: US (occurrence: US)
  Receive Date: 20180322
  Receipt Date: 20180323
  Transmission Date: 20180509
  Serious: No
  Sender: FDA-Public Use
  Company Number: US-PFIZER INC-2018114009

PATIENT
  Age: 37 Year
  Sex: Female

DRUGS (1)
  1. METHOTREXATE SODIUM. [Suspect]
     Active Substance: METHOTREXATE SODIUM
     Dosage: 0.8 ML, UNK, (FOR ONE DOSE)
     Route: 058

REACTIONS (5)
  - Dyspnoea [Unknown]
  - Abdominal pain [Unknown]
  - Gait disturbance [Unknown]
  - Injection site pain [Unknown]
  - Fatigue [Unknown]
